FAERS Safety Report 7629992-4 (Version None)
Quarter: 2011Q3

REPORT INFORMATION
  Report Type: 
  Country: None (occurrence: None)
  Receive Date: 20110722
  Receipt Date: 20110720
  Transmission Date: 20111222
  Serious: Yes (Other)
  Sender: FDA-Public Use
  Company Number: ES-MERCK-1106ESP00071

PATIENT
  Age: 7 Month
  Sex: Male
  Weight: 8 kg

DRUGS (1)
  1. SINGULAIR [Suspect]
     Indication: WHEEZING
     Route: 048
     Dates: start: 20110322, end: 20110322

REACTIONS (1)
  - ANAPHYLACTIC SHOCK [None]
